FAERS Safety Report 5593068-0 (Version None)
Quarter: 2008Q1

REPORT INFORMATION
  Report Type: 
  Country: None (occurrence: None)
  Receive Date: 20080116
  Receipt Date: 20080108
  Transmission Date: 20080703
  Serious: Yes (Other)
  Sender: FDA-Public Use
  Company Number: US-BAYER-200713686BCC

PATIENT
  Age: 71 Year
  Sex: Male
  Weight: 84 kg

DRUGS (7)
  1. ASPIRIN [Suspect]
     Indication: CATHETERISATION CARDIAC
     Dosage: UNIT DOSE: 325 MG
     Route: 048
     Dates: start: 20070731, end: 20070731
  2. ASPIRIN [Suspect]
     Dosage: UNIT DOSE: 325 MG
     Route: 048
     Dates: start: 20070801, end: 20070801
  3. PROTONIX [Concomitant]
     Dosage: TOTAL DAILY DOSE: 40 MG  UNIT DOSE: 40 NG
     Route: 048
  4. ZOCOR [Concomitant]
     Dosage: TOTAL DAILY DOSE: 10 MG  UNIT DOSE: 10 MG
     Route: 048
  5. ATENOLOL [Concomitant]
     Dosage: TOTAL DAILY DOSE: 50 MG  UNIT DOSE: 50 MG
     Route: 048
  6. COENZYME Q10 [Concomitant]
     Dosage: TOTAL DAILY DOSE: 200 MG  UNIT DOSE: 100 MG
     Route: 048
  7. PLAVIX [Concomitant]

REACTIONS (6)
  - BLOOD URINE PRESENT [None]
  - GENITAL BURNING SENSATION [None]
  - NERVOUSNESS [None]
  - PAIN [None]
  - PENILE HAEMORRHAGE [None]
  - TESTICULAR PAIN [None]
